FAERS Safety Report 4682149-1 (Version None)
Quarter: 2005Q2

REPORT INFORMATION
  Report Type: 
  Country: None (occurrence: None)
  Receive Date: 20050526
  Receipt Date: 20050412
  Transmission Date: 20051028
  Serious: Yes (Hospitalization)
  Sender: FDA-Public Use
  Company Number: US-JNJFOC-20050403117

PATIENT
  Sex: Male

DRUGS (3)
  1. RISPERDAL [Suspect]
     Dosage: INTRA-MUSCULAR
     Route: 030
  2. TRAZODONE HCL [Concomitant]
  3. DEPAKOTE [Concomitant]

REACTIONS (1)
  - DIABETIC KETOACIDOSIS [None]
